FAERS Safety Report 8837644 (Version 2)
Quarter: 2012Q4

REPORT INFORMATION
  Report Type: 
  Country: FR (occurrence: FR)
  Receive Date: 20121012
  Receipt Date: 20121025
  Transmission Date: 20130627
  Serious: Yes (Death, Life-Threatening, Hospitalization, Other)
  Sender: FDA-Public Use
  Company Number: PHHY2012FR083451

PATIENT
  Age: 67 Year
  Sex: Female

DRUGS (2)
  1. AFINITOR [Suspect]
     Indication: BREAST CANCER
     Dosage: UNK
     Route: 048
     Dates: start: 20120817, end: 20120911
  2. AROMASIN [Suspect]
     Indication: BREAST CANCER
     Route: 048
     Dates: start: 20120817

REACTIONS (17)
  - Death [Fatal]
  - Acute respiratory distress syndrome [Recovering/Resolving]
  - Respiratory distress [Unknown]
  - Interstitial lung disease [Unknown]
  - Lung disorder [Unknown]
  - Pyrexia [Unknown]
  - Bronchial disorder [Unknown]
  - Cough [Unknown]
  - Dyspnoea [Unknown]
  - Tremor [Unknown]
  - Pulmonary arterial hypertension [Unknown]
  - Tachycardia [Unknown]
  - Cardiac failure [Unknown]
  - Left ventricular failure [Unknown]
  - Ejection fraction decreased [Unknown]
  - Hypokinesia [Unknown]
  - Candidiasis [Unknown]
